FAERS Safety Report 14706830 (Version 1)
Quarter: 2018Q2

REPORT INFORMATION
  Report Type: Report from Study
  Country: NL (occurrence: NL)
  Receive Date: 20180403
  Receipt Date: 20180403
  Transmission Date: 20180711
  Serious: Yes (Death, Other)
  Sender: FDA-Public Use
  Company Number: NL-ROCHE-2101054

PATIENT

DRUGS (50)
  1. VINCRISTINE [Suspect]
     Active Substance: VINCRISTINE
     Route: 042
  2. PREDNISOLONE. [Suspect]
     Active Substance: PREDNISOLONE
     Dosage: IV OR ORAL 100 MG/M2
     Route: 065
  3. METHOTREXATE. [Suspect]
     Active Substance: METHOTREXATE
     Indication: BURKITT^S LYMPHOMA
     Dosage: 15 MG DAY 2, DAY29
     Route: 037
  4. CYTARABINE. [Suspect]
     Active Substance: CYTARABINE
     Dosage: DAY 2-5
     Route: 042
  5. ETOPOSIDE. [Suspect]
     Active Substance: ETOPOSIDE
     Route: 042
  6. RITUXIMAB. [Suspect]
     Active Substance: RITUXIMAB
     Indication: BURKITT^S LYMPHOMA
     Route: 042
  7. ADRIAMYCIN [Suspect]
     Active Substance: DOXORUBICIN HYDROCHLORIDE
     Route: 042
  8. CYTARABINE. [Suspect]
     Active Substance: CYTARABINE
     Dosage: DAY 1-5
     Route: 065
  9. ETOPOSIDE. [Suspect]
     Active Substance: ETOPOSIDE
     Route: 065
  10. ETOPOSIDE. [Suspect]
     Active Substance: ETOPOSIDE
     Route: 042
  11. DEXAMETHASONE. [Suspect]
     Active Substance: DEXAMETHASONE
     Route: 048
  12. CYCLOPHOSPHAMIDE. [Suspect]
     Active Substance: CYCLOPHOSPHAMIDE
     Route: 042
  13. METHOTREXATE. [Suspect]
     Active Substance: METHOTREXATE
     Dosage: DAY 1, HIGH DOSE
     Route: 042
  14. ADRIAMYCIN [Suspect]
     Active Substance: DOXORUBICIN HYDROCHLORIDE
     Route: 042
  15. ETOPOSIDE. [Suspect]
     Active Substance: ETOPOSIDE
     Route: 042
  16. VINDESINE [Suspect]
     Active Substance: VINDESINE
     Indication: BURKITT^S LYMPHOMA
     Route: 042
  17. VINCRISTINE [Suspect]
     Active Substance: VINCRISTINE
     Route: 042
  18. ETOPOSIDE. [Suspect]
     Active Substance: ETOPOSIDE
     Dosage: DAY 1-3
     Route: 042
  19. DEXAMETHASONE. [Suspect]
     Active Substance: DEXAMETHASONE
     Indication: BURKITT^S LYMPHOMA
     Route: 048
  20. DEXAMETHASONE. [Suspect]
     Active Substance: DEXAMETHASONE
     Route: 037
  21. CYCLOPHOSPHAMIDE. [Suspect]
     Active Substance: CYCLOPHOSPHAMIDE
     Route: 042
  22. METHOTREXATE. [Suspect]
     Active Substance: METHOTREXATE
     Dosage: 1.2 G/M2
     Route: 042
  23. METHOTREXATE. [Suspect]
     Active Substance: METHOTREXATE
     Route: 065
  24. ADRIAMYCIN [Suspect]
     Active Substance: DOXORUBICIN HYDROCHLORIDE
     Route: 042
  25. ADRIAMYCIN [Suspect]
     Active Substance: DOXORUBICIN HYDROCHLORIDE
     Route: 042
  26. CYTARABINE. [Suspect]
     Active Substance: CYTARABINE
     Dosage: DAY 11-12
     Route: 042
  27. ETOPOSIDE. [Suspect]
     Active Substance: ETOPOSIDE
     Route: 042
  28. IFOSFAMIDE. [Suspect]
     Active Substance: IFOSFAMIDE
     Indication: BURKITT^S LYMPHOMA
     Route: 042
  29. IFOSFAMIDE. [Suspect]
     Active Substance: IFOSFAMIDE
     Route: 042
  30. VINCRISTINE [Suspect]
     Active Substance: VINCRISTINE
     Indication: BURKITT^S LYMPHOMA
     Route: 042
  31. VINCRISTINE [Suspect]
     Active Substance: VINCRISTINE
     Dosage: DAY 1
     Route: 042
  32. HYDROCORTISONE. [Suspect]
     Active Substance: HYDROCORTISONE
     Indication: BURKITT^S LYMPHOMA
     Dosage: DAY 2
     Route: 037
  33. CYTARABINE. [Suspect]
     Active Substance: CYTARABINE
     Dosage: 4 G/M2
     Route: 042
  34. CYTARABINE. [Suspect]
     Active Substance: CYTARABINE
     Route: 042
  35. CYCLOPHOSPHAMIDE. [Suspect]
     Active Substance: CYCLOPHOSPHAMIDE
     Indication: BURKITT^S LYMPHOMA
     Dosage: DAY 1
     Route: 042
  36. CYCLOPHOSPHAMIDE. [Suspect]
     Active Substance: CYCLOPHOSPHAMIDE
     Dosage: DAY 2-4
     Route: 042
  37. CYCLOPHOSPHAMIDE. [Suspect]
     Active Substance: CYCLOPHOSPHAMIDE
     Dosage: DAY 1-5
     Route: 042
  38. CYCLOPHOSPHAMIDE. [Suspect]
     Active Substance: CYCLOPHOSPHAMIDE
     Route: 042
  39. CYCLOPHOSPHAMIDE. [Suspect]
     Active Substance: CYCLOPHOSPHAMIDE
     Route: 042
  40. METHOTREXATE. [Suspect]
     Active Substance: METHOTREXATE
     Dosage: 1.5 G/M2
     Route: 065
  41. CYTARABINE. [Suspect]
     Active Substance: CYTARABINE
     Dosage: 2 G/M2
     Route: 042
  42. MITOXANTRONE [Suspect]
     Active Substance: MITOXANTRONE HYDROCHLORIDE
     Indication: BURKITT^S LYMPHOMA
     Route: 042
  43. PREDNISOLONE. [Suspect]
     Active Substance: PREDNISOLONE
     Indication: BURKITT^S LYMPHOMA
     Dosage: IV OR ORAL 60 MG/M2
     Route: 065
  44. METHOTREXATE. [Suspect]
     Active Substance: METHOTREXATE
     Dosage: 1.5 G/M2
     Route: 065
  45. ADRIAMYCIN [Suspect]
     Active Substance: DOXORUBICIN HYDROCHLORIDE
     Indication: BURKITT^S LYMPHOMA
     Dosage: DAY 2
     Route: 042
  46. CYTARABINE. [Suspect]
     Active Substance: CYTARABINE
     Indication: BURKITT^S LYMPHOMA
     Dosage: DAY 6
     Route: 037
  47. CYTARABINE. [Suspect]
     Active Substance: CYTARABINE
     Route: 037
  48. ETOPOSIDE. [Suspect]
     Active Substance: ETOPOSIDE
     Indication: BURKITT^S LYMPHOMA
     Dosage: DAY 2-5
     Route: 042
  49. CARMUSTINE [Suspect]
     Active Substance: CARMUSTINE
     Indication: BURKITT^S LYMPHOMA
     Route: 042
  50. MELFALAN [Suspect]
     Active Substance: MELPHALAN
     Indication: BURKITT^S LYMPHOMA
     Route: 065

REACTIONS (4)
  - Nephropathy toxic [Unknown]
  - Infection [Unknown]
  - Hepatotoxicity [Unknown]
  - Sepsis [Fatal]
